FAERS Safety Report 5017445-1 (Version None)
Quarter: 2006Q2

REPORT INFORMATION
  Report Type: 
  Country: None (occurrence: None)
  Receive Date: 20060525
  Receipt Date: 20060519
  Transmission Date: 20061013
  Serious: Yes (Other)
  Sender: FDA-Public Use
  Company Number: 200612123BCC

PATIENT
  Age: 92 Year
  Sex: Female
  Weight: 40.3701 kg

DRUGS (2)
  1. MILK OF MAGNESIA TAB [Suspect]
     Indication: CONSTIPATION
     Dosage: QD; ORAL
     Route: 048
     Dates: start: 20020101
  2. STOOL SOFTENER [Concomitant]

REACTIONS (1)
  - HAEMATOCHEZIA [None]
